FAERS Safety Report 24189390 (Version 1)
Quarter: 2024Q3

REPORT INFORMATION
  Report Type: Spontaneous
  Country: CA (occurrence: CA)
  Receive Date: 20240808
  Receipt Date: 20240808
  Transmission Date: 20241017
  Serious: Yes (Hospitalization)
  Sender: TASMAN PHARMA
  Company Number: CA-TASMAN PHARMA, INC.-2024TSM00220

PATIENT
  Age: 48 Year
  Sex: Female

DRUGS (5)
  1. CLOZAPINE [Suspect]
     Active Substance: CLOZAPINE
     Indication: Schizoaffective disorder
     Dosage: MAX DOSE 600 MG/DAY
  2. CLOZAPINE [Suspect]
     Active Substance: CLOZAPINE
     Dosage: ATTEMPTS AT DOSE REDUCTION
  3. CLOZAPINE [Suspect]
     Active Substance: CLOZAPINE
     Dosage: ALTERNATING DOSES OF 500/525 MG/DAY
  4. LORAZEPAM [Concomitant]
     Active Substance: LORAZEPAM
     Dosage: 1 MG, 3X/DAY
  5. SERTRALINE [Concomitant]
     Active Substance: SERTRALINE HYDROCHLORIDE
     Dosage: 125 MG, 1X/DAY

REACTIONS (2)
  - Parkinsonism [Recovering/Resolving]
  - Dystonia [Recovering/Resolving]
